FAERS Safety Report 6217288-7 (Version None)
Quarter: 2009Q2

REPORT INFORMATION
  Report Type: 
  Country: None (occurrence: None)
  Receive Date: 20090608
  Receipt Date: 20090604
  Transmission Date: 20091009
  Serious: Yes (Hospitalization, Other)
  Sender: FDA-Public Use
  Company Number: US-PFIZER INC-2009150887

PATIENT
  Sex: Female
  Weight: 63.492 kg

DRUGS (7)
  1. ZOLOFT [Suspect]
     Indication: ANXIETY
     Dosage: UNK
     Dates: start: 20081126
  2. ZOLOFT [Suspect]
     Indication: DEPRESSION
  3. WELLBUTRIN [Concomitant]
  4. AMOXICILLIN [Concomitant]
  5. AUGMENTIN [Concomitant]
  6. ATENOLOL [Concomitant]
  7. FLORINEF [Concomitant]
     Dosage: UNK

REACTIONS (2)
  - LOSS OF CONSCIOUSNESS [None]
  - WEIGHT DECREASED [None]
